FAERS Safety Report 9543372 (Version 1)
Quarter: 2013Q3

REPORT INFORMATION
  Report Type: Report from Study
  Country: US (occurrence: US)
  Receive Date: 20130923
  Receipt Date: 20130923
  Transmission Date: 20140515
  Serious: Yes (Hospitalization, Other)
  Sender: FDA-Public Use
  Company Number: US-JNJFOC-20130910679

PATIENT
  Age: 21 Year
  Sex: Male

DRUGS (8)
  1. REMICADE [Suspect]
     Indication: CROHN^S DISEASE
     Route: 042
  2. ASACOL [Suspect]
     Indication: CROHN^S DISEASE
     Route: 065
  3. IMURAN [Suspect]
     Indication: CROHN^S DISEASE
     Route: 065
  4. AZATHIOPRINE [Suspect]
     Indication: CROHN^S DISEASE
     Route: 065
  5. HUMIRA [Suspect]
     Indication: CROHN^S DISEASE
     Route: 065
  6. METHOTREXATE [Suspect]
     Indication: CROHN^S DISEASE
     Route: 065
  7. CIMZIA [Suspect]
     Indication: CROHN^S DISEASE
     Route: 065
  8. PREDNISONE [Suspect]
     Indication: CROHN^S DISEASE
     Route: 065

REACTIONS (5)
  - Pancreatitis [Unknown]
  - Surgery [Unknown]
  - Nephrolithiasis [Unknown]
  - Asthenia [Not Recovered/Not Resolved]
  - Malaise [Unknown]
